FAERS Safety Report 4514506-8 (Version None)
Quarter: 2004Q3

REPORT INFORMATION
  Report Type: 
  Country: None (occurrence: None)
  Receive Date: 20040928
  Receipt Date: 20040629
  Transmission Date: 20050211
  Serious: No
  Sender: FDA-Public Use
  Company Number: 04P-163-0265139-00

PATIENT
  Age: 54 Year
  Sex: Female

DRUGS (8)
  1. HUMIRA [Suspect]
     Indication: RHEUMATOID ARTHRITIS
     Dosage: 40 MG, 1 IN 2 WK, SUBCUTANEOUS
     Route: 058
     Dates: start: 20040617
  2. PREDNISONE [Concomitant]
  3. ESOMEPRAZOLE [Concomitant]
  4. PROMETHAZINE [Concomitant]
  5. VENLAFAXINE HYDROCHLORIDE [Concomitant]
  6. DICYCLOMINE HCL [Concomitant]
  7. FEXOFENADINE HYDROCHLORIDE [Concomitant]
  8. IMITREX [Concomitant]

REACTIONS (1)
  - MIGRAINE [None]
